FAERS Safety Report 17063584 (Version 1)
Quarter: 2019Q4

REPORT INFORMATION
  Report Type: Spontaneous
  Country: US (occurrence: US)
  Receive Date: 20191023
  Receipt Date: 20191023
  Transmission Date: 20200122
  Serious: Yes (Life-Threatening, Hospitalization, Other)
  Sender: FDA-Public Use
  Company Number: None

PATIENT
  Age: 75 Year
  Sex: Female
  Weight: 53.52 kg

DRUGS (1)
  1. XIAFLEX [Suspect]
     Active Substance: COLLAGENASE CLOSTRIDIUM HISTOLYTICUM
     Indication: DUPUYTREN^S CONTRACTURE
     Dosage: ?          OTHER DOSE:0.9 MG;OTHER ROUTE:INJECTION IN FINGER?
     Dates: start: 20190501

REACTIONS (2)
  - Chest pain [None]
  - B-cell lymphoma [None]

NARRATIVE: CASE EVENT DATE: 20190501
